FAERS Safety Report 8203107 (Version 6)
Quarter: 2014Q2

REPORT INFORMATION
  Report Type: Spontaneous
  Country: US (occurrence: US)
  Receive Date: 20111027
  Receipt Date: 20140529
  Transmission Date: 20141212
  Serious: Yes (Hospitalization, Other)
  Sender: FDA-Public Use
  Company Number: US-ASTRAZENECA-2011SE10249

PATIENT
  Age: 54 Year
  Sex: Female
  Weight: 44 kg

DRUGS (47)
  1. PULMICORT FLEXHALER [Suspect]
     Route: 055
  2. RHINOCORT AQUA NASAL SPRAY [Suspect]
     Indication: SINUSITIS
     Dosage: 32MCG 2 SPRAY BID
     Route: 045
  3. NEXIUM [Suspect]
     Indication: GASTROOESOPHAGEAL REFLUX DISEASE
     Route: 048
     Dates: start: 2001
  4. NEXIUM [Suspect]
     Indication: GASTROOESOPHAGEAL REFLUX DISEASE
     Route: 048
     Dates: start: 2001
  5. NEXIUM [Suspect]
     Indication: GASTRITIS
     Route: 048
     Dates: start: 2001
  6. TOPROL XL [Suspect]
     Route: 048
  7. TOPROL XL [Suspect]
     Route: 048
     Dates: start: 2012
  8. PRILOSEC [Suspect]
     Route: 048
  9. CRESTOR [Suspect]
     Route: 048
  10. CRESTOR [Suspect]
     Route: 048
     Dates: start: 2012
  11. ZOMIG [Suspect]
     Indication: MIGRAINE
     Route: 048
  12. ZOMIG [Suspect]
     Indication: MIGRAINE
     Route: 048
  13. ZOMIG [Suspect]
     Indication: MIGRAINE
     Route: 048
  14. LUPUS MEDICATIONS [Concomitant]
  15. LYRICA [Concomitant]
     Indication: FIBROMYALGIA
     Route: 048
  16. LYRICA [Concomitant]
     Indication: NEUROPATHY PERIPHERAL
     Route: 048
  17. PHRENILIN [Concomitant]
     Indication: MIGRAINE
     Dosage: 325-50MG 2 TAB Q4H
     Route: 048
     Dates: start: 1991
  18. NORVASC [Concomitant]
     Indication: LUPUS-LIKE SYNDROME
     Route: 048
     Dates: start: 2008
  19. ZOCOR [Concomitant]
     Indication: BLOOD PRESSURE ABNORMAL
     Route: 048
  20. MAXZIDE [Concomitant]
     Indication: DIURETIC THERAPY
     Route: 048
  21. CARAFATE [Concomitant]
     Indication: GASTRIC DISORDER
     Route: 048
  22. REQUIP [Concomitant]
     Indication: RESTLESS LEGS SYNDROME
     Route: 048
  23. PREDNISONE [Concomitant]
     Indication: LUPUS-LIKE SYNDROME
     Route: 048
  24. ULTRAM [Concomitant]
     Indication: ARTHRITIS
     Dosage: 50MG 2TAB Q6H
     Route: 048
  25. MOBIC [Concomitant]
     Indication: MUSCLE DISORDER
     Route: 048
  26. XANAX [Concomitant]
     Indication: ANXIETY
     Route: 048
  27. CLARITIN [Concomitant]
  28. LORATIDINE OTC [Concomitant]
     Indication: MULTIPLE ALLERGIES
     Route: 048
  29. FUROSEMIDE [Concomitant]
     Indication: DIURETIC THERAPY
     Route: 048
  30. VALIUM [Concomitant]
     Indication: SLEEP DISORDER
     Route: 048
  31. VENTOLIN [Concomitant]
     Indication: DYSPNOEA
     Dosage: 90MCG PRN
     Route: 055
  32. SOMA [Concomitant]
     Indication: TENSION HEADACHE
     Route: 048
  33. SOMA [Concomitant]
     Indication: RESTLESS LEGS SYNDROME
     Route: 048
  34. KLORCON [Concomitant]
     Indication: MINERAL SUPPLEMENTATION
     Route: 048
  35. PLAQUANIL [Concomitant]
     Indication: LUPUS-LIKE SYNDROME
     Route: 048
  36. METHOTREXATE [Concomitant]
     Indication: RHEUMATOID ARTHRITIS
     Dosage: 2.5MG 5 TAB M AND THUR
     Route: 048
  37. FOLIC ACID [Concomitant]
     Indication: ALOPECIA
     Route: 048
  38. ALBUTEROL [Concomitant]
     Indication: LUNG DISORDER
     Dosage: PRN
  39. PYRIDIUM [Concomitant]
     Indication: ANGIOPATHY
     Route: 048
  40. BETAMETHASONE DIPROPIONATE [Concomitant]
     Indication: LUPUS-LIKE SYNDROME
     Route: 061
  41. BETAMETHASONE DIPROPIONATE [Concomitant]
     Indication: LUPUS-LIKE SYNDROME
  42. MUPIROCIN [Concomitant]
     Indication: RAYNAUD^S PHENOMENON
     Route: 061
  43. VITAMIN D3 [Concomitant]
     Indication: MINERAL SUPPLEMENTATION
     Route: 048
  44. VITAMIN B12 [Concomitant]
     Dosage: 3000 DAILY
     Route: 048
  45. CALCIUM [Concomitant]
     Indication: MINERAL SUPPLEMENTATION
     Route: 048
  46. VITAMIN E [Concomitant]
  47. CINNAMON [Concomitant]
     Indication: BLOOD GLUCOSE ABNORMAL

REACTIONS (36)
  - Haemorrhagic diathesis [Unknown]
  - Dyspnoea [Recovered/Resolved]
  - Electrocardiogram abnormal [Recovered/Resolved]
  - Sjogren^s syndrome [Unknown]
  - Extrasystoles [Recovered/Resolved]
  - Oesophageal stenosis [Not Recovered/Not Resolved]
  - Fall [Recovered/Resolved]
  - Fracture [Recovered/Resolved]
  - Pneumonia [Recovered/Resolved]
  - Blood potassium abnormal [Recovered/Resolved]
  - Gastrooesophageal reflux disease [Unknown]
  - Systemic lupus erythematosus [Not Recovered/Not Resolved]
  - Haemorrhage [Unknown]
  - Sinusitis [Unknown]
  - Sinus disorder [Unknown]
  - Adverse drug reaction [Unknown]
  - Migraine [Not Recovered/Not Resolved]
  - Malaise [Unknown]
  - Vomiting [Unknown]
  - Headache [Unknown]
  - Abdominal discomfort [Unknown]
  - Memory impairment [Not Recovered/Not Resolved]
  - Tension headache [Not Recovered/Not Resolved]
  - Neuropathy peripheral [Not Recovered/Not Resolved]
  - Herpes zoster [Recovered/Resolved]
  - Skin lesion [Recovered/Resolved]
  - Red blood cells urine positive [Unknown]
  - White blood cells urine positive [Unknown]
  - Oesophageal pain [Not Recovered/Not Resolved]
  - Bronchitis chronic [Unknown]
  - Mood swings [Unknown]
  - Increased tendency to bruise [Unknown]
  - Multiple allergies [Unknown]
  - Drug hypersensitivity [Unknown]
  - Drug ineffective [Unknown]
  - Intentional product misuse [Recovered/Resolved]
